FAERS Safety Report 8269667-4 (Version None)
Quarter: 2012Q2

REPORT INFORMATION
  Report Type: 
  Country: None (occurrence: None)
  Receive Date: 20120405
  Receipt Date: 20120321
  Transmission Date: 20120825
  Serious: Yes (Other)
  Sender: FDA-Public Use
  Company Number: JPI-P-019903

PATIENT
  Age: 30 Year
  Sex: Female
  Weight: 69.4003 kg

DRUGS (4)
  1. XYREM [Suspect]
     Indication: NARCOLEPSY
     Dosage: 7.5GM (3.75 GM, 2 IN 1 D) ORAL
     Route: 048
     Dates: start: 20120201
  2. XYREM [Suspect]
     Indication: NARCOLEPSY
     Dosage: 7.5GM (3.75 GM, 2 IN 1 D) ORAL
     Route: 048
     Dates: start: 20110728
  3. XYREM [Suspect]
     Indication: NARCOLEPSY
     Dosage: 7.5GM (3.75 GM, 2 IN 1 D) ORAL
     Route: 048
     Dates: start: 20110101, end: 20111220
  4. MULTIPLE UNSPECIFIED MEDICATIONS [Concomitant]

REACTIONS (10)
  - HYPOAESTHESIA [None]
  - INTERVERTEBRAL DISC PROTRUSION [None]
  - SKIN ODOUR ABNORMAL [None]
  - NERVE INJURY [None]
  - MUSCULOSKELETAL PAIN [None]
  - TRANSPLANT [None]
  - MYOSITIS [None]
  - PAIN IN EXTREMITY [None]
  - HYPERHIDROSIS [None]
  - NECK PAIN [None]
